FAERS Safety Report 20924098 (Version 6)
Quarter: 2023Q1

REPORT INFORMATION
  Report Type: Report from Study
  Country: US (occurrence: US)
  Receive Date: 20220607
  Receipt Date: 20230215
  Transmission Date: 20230417
  Serious: Yes (Hospitalization)
  Sender: FDA-Public Use
  Company Number: US-NOVARTISPH-NVSC2022US127631

PATIENT
  Age: 0 Year
  Sex: Male
  Weight: 8.4 kg

DRUGS (7)
  1. TRAMETINIB [Suspect]
     Active Substance: TRAMETINIB
     Indication: BRAF gene mutation
     Dosage: POWDER, STRENGTH: 0.05 MG/ML, ORAL SOLUTION
     Route: 048
     Dates: start: 20220519
  2. TRAMETINIB [Suspect]
     Active Substance: TRAMETINIB
     Indication: Astrocytoma malignant
     Dosage: 0.18 MG, (GJ-TUBE)
     Dates: start: 20220520
  3. TRAMETINIB [Suspect]
     Active Substance: TRAMETINIB
     Dosage: 4.8 ML, QD (NJ/GJ-TUBE)
     Dates: start: 20220520, end: 20220527
  4. TRAMETINIB [Suspect]
     Active Substance: TRAMETINIB
     Dosage: 0.016 MG/KG, QD, (0.05 MG/ML, VIA G-TUBE))
     Route: 048
     Dates: start: 20220520, end: 20220809
  5. TRAMETINIB [Suspect]
     Active Substance: TRAMETINIB
     Dosage: UNK
     Route: 065
     Dates: start: 20220830
  6. TRAMETINIB [Suspect]
     Active Substance: TRAMETINIB
     Dosage: 3.2 ML/DAY (ROUTE NJ/GJ TUBE)
     Route: 065
     Dates: start: 20221025, end: 20221121
  7. TRAMETINIB [Suspect]
     Active Substance: TRAMETINIB
     Dosage: 0.016 MG/KG, QD (POWDER, 0.17MG/3.4ML, DAILY)
     Route: 048

REACTIONS (17)
  - COVID-19 [Recovered/Resolved]
  - Oxygen saturation decreased [Recovered/Resolved]
  - Stridor [Recovered/Resolved]
  - Respiratory distress [Recovered/Resolved]
  - Respiratory tract congestion [Recovered/Resolved]
  - Cough [Recovered/Resolved]
  - Influenza [Recovered/Resolved]
  - Cough [Recovered/Resolved]
  - Hypoxia [Recovered/Resolved]
  - Nasal congestion [Recovered/Resolved]
  - Tachypnoea [Recovered/Resolved]
  - Hypertension [Recovered/Resolved]
  - Tachycardia [Recovered/Resolved]
  - Dyspnoea [Recovered/Resolved]
  - Blood sodium decreased [Recovered/Resolved]
  - Skin toxicity [Recovering/Resolving]
  - Hypernatraemia [Recovered/Resolved]

NARRATIVE: CASE EVENT DATE: 20220527
